FAERS Safety Report 5903827-X (Version None)
Quarter: 2008Q3

REPORT INFORMATION
  Report Type: 
  Country: None (occurrence: None)
  Receive Date: 20080930
  Receipt Date: 20080924
  Transmission Date: 20090109
  Serious: Yes (Other)
  Sender: FDA-Public Use
  Company Number: NL-AMGEN-US310087

PATIENT
  Age: 59 Year
  Sex: Male
  Weight: 83 kg

DRUGS (4)
  1. ENBREL [Suspect]
     Indication: PSORIASIS
     Dosage: LYOPHILIZED: 25 MG 2 X 1 WEEK
     Route: 058
     Dates: start: 20050301, end: 20060601
  2. ENBREL [Suspect]
     Dosage: LYOPHILIZED 50 MG 2 X 1 WEEK
     Route: 058
     Dates: start: 20060601, end: 20080831
  3. ENBREL [Suspect]
     Dosage: PFS: 50 MG 2 X 1 WEEK
     Route: 058
     Dates: start: 20080901
  4. INSULIN [Concomitant]
     Route: 065

REACTIONS (5)
  - BLOOD GLUCOSE ABNORMAL [None]
  - DRUG INEFFECTIVE [None]
  - INJECTION SITE PAIN [None]
  - NAUSEA [None]
  - TRANSFERRIN INCREASED [None]
